FAERS Safety Report 9269067 (Version 1)
Quarter: 2013Q2

REPORT INFORMATION
  Report Type: Spontaneous
  Country: FR (occurrence: FR)
  Receive Date: 20130503
  Receipt Date: 20130503
  Transmission Date: 20140414
  Serious: Yes (Death)
  Sender: FDA-Public Use
  Company Number: FR-ROCHE-1217640

PATIENT
  Age: 39 Year
  Sex: Female

DRUGS (10)
  1. CELLCEPT [Suspect]
     Indication: GRAFT VERSUS HOST DISEASE
     Route: 065
     Dates: start: 20130320
  2. CYMEVAN [Suspect]
     Indication: CYTOMEGALOVIRUS INFECTION
     Route: 042
     Dates: start: 20130330
  3. SOLIRIS [Suspect]
     Indication: HAEMOLYTIC URAEMIC SYNDROME
     Dosage: MOST RECENT DOSE ON 05/APR/2013
     Route: 042
     Dates: start: 20130327
  4. NOXAFIL [Suspect]
     Indication: GASTROINTESTINAL CANDIDIASIS
     Route: 048
     Dates: start: 20130320, end: 20130328
  5. CANCIDAS [Suspect]
     Indication: GASTROINTESTINAL CANDIDIASIS
     Route: 065
     Dates: start: 20130328
  6. INEXIUM [Suspect]
     Indication: GASTROOESOPHAGEAL REFLUX DISEASE
     Route: 048
     Dates: start: 20130318, end: 20130401
  7. TAZOCILLINE [Suspect]
     Indication: ESCHERICHIA INFECTION
     Route: 042
     Dates: start: 20130212, end: 20130403
  8. FOSCAVIR [Suspect]
     Indication: CYTOMEGALOVIRUS INFECTION
     Route: 065
     Dates: start: 20130319, end: 20130329
  9. BUSILVEX [Concomitant]
  10. ENDOXAN [Concomitant]

REACTIONS (1)
  - Bone marrow failure [Fatal]
